FAERS Safety Report 7311981-0 (Version None)
Quarter: 2011Q1

REPORT INFORMATION
  Report Type: 
  Country: None (occurrence: None)
  Receive Date: 20110224
  Receipt Date: 20110215
  Transmission Date: 20110831
  Serious: Yes (Other)
  Sender: FDA-Public Use
  Company Number: US-PFIZER INC-2010134644

PATIENT
  Sex: Male

DRUGS (2)
  1. COSOPT [Concomitant]
     Dosage: UNK, 2X/DAILY (BID), IN EACH EYE (OU)
  2. XALATAN [Suspect]
     Indication: NORMAL TENSION GLAUCOMA
     Dosage: UNK, BEDTIME IN EACH EYE(QHS OU)
     Route: 047

REACTIONS (3)
  - INTRAOCULAR PRESSURE INCREASED [None]
  - GLAUCOMA [None]
  - DRUG INEFFECTIVE [None]
